FAERS Safety Report 5171605-8 (Version None)
Quarter: 2006Q4

REPORT INFORMATION
  Report Type: 
  Country: None (occurrence: None)
  Receive Date: 20061213
  Receipt Date: 20061205
  Transmission Date: 20070319
  Serious: Yes (Other)
  Sender: FDA-Public Use
  Company Number: US-ROCHE-474143

PATIENT
  Sex: Male

DRUGS (3)
  1. PEGASYS [Suspect]
     Indication: DRUG USE FOR UNKNOWN INDICATION
     Dosage: STRENGTH: 180 MCG/0.5ML.
     Route: 058
     Dates: start: 20051015
  2. COPEGUS [Suspect]
     Indication: DRUG USE FOR UNKNOWN INDICATION
     Route: 048
     Dates: start: 20051015
  3. DIFLUCAN [Suspect]
     Indication: COCCIDIOIDOMYCOSIS
     Route: 065
     Dates: start: 20060715

REACTIONS (4)
  - COCCIDIOIDOMYCOSIS [None]
  - TONGUE DISCOLOURATION [None]
  - VIRAL LOAD INCREASED [None]
  - VISUAL DISTURBANCE [None]
